FAERS Safety Report 4312006-1 (Version None)
Quarter: 2004Q1

REPORT INFORMATION
  Report Type: 
  Country: None (occurrence: None)
  Receive Date: 20040305
  Receipt Date: 20031210
  Transmission Date: 20041129
  Serious: No
  Sender: FDA-Public Use
  Company Number: US-GLAXOSMITHKLINE-A0442620A

PATIENT
  Age: 53 Year
  Sex: Female

DRUGS (8)
  1. REQUIP [Suspect]
     Dosage: .25MG PER DAY
     Route: 048
     Dates: start: 20031126
  2. TAMOXIFEN [Concomitant]
  3. PERCOCET [Concomitant]
  4. LEVOXYL [Concomitant]
  5. CELEBREX [Concomitant]
  6. LEVSIN PB [Concomitant]
  7. CELEXA [Concomitant]
  8. DYAZIDE [Concomitant]

REACTIONS (2)
  - ERYTHEMA [None]
  - HYPERHIDROSIS [None]
